FAERS Safety Report 9298606 (Version 2)
Quarter: 2013Q2

REPORT INFORMATION
  Report Type: Spontaneous
  Country: DE (occurrence: DE)
  Receive Date: 20130520
  Receipt Date: 20130522
  Transmission Date: 20140414
  Serious: Yes (Life-Threatening, Hospitalization)
  Sender: FDA-Public Use
  Company Number: DE-BAYER-2013-061837

PATIENT
  Age: 65 Year
  Sex: Female

DRUGS (2)
  1. ULTRAVIST [Suspect]
     Indication: COMPUTERISED TOMOGRAM
     Dosage: 100 ML, ONCE VIA INJECTION PUMP HIGH PRESSURE
     Route: 042
     Dates: start: 20130516, end: 20130516
  2. ULTRAVIST [Suspect]
     Indication: PULMONARY EMBOLISM

REACTIONS (6)
  - Hypersensitivity [Recovering/Resolving]
  - Cardiovascular disorder [Recovering/Resolving]
  - Laryngospasm [Recovering/Resolving]
  - Muscle spasms [Recovering/Resolving]
  - Dyspnoea [Recovering/Resolving]
  - Bronchospasm [Recovering/Resolving]
